FAERS Safety Report 5499425-5 (Version None)
Quarter: 2007Q4

REPORT INFORMATION
  Report Type: 
  Country: None (occurrence: None)
  Receive Date: 20071026
  Receipt Date: 20071019
  Transmission Date: 20080405
  Serious: Yes (Death)
  Sender: FDA-Public Use
  Company Number: B0492782A

PATIENT
  Age: 60 Year
  Sex: Male
  Weight: 84 kg

DRUGS (3)
  1. AVANDIA [Suspect]
     Indication: DIABETES MELLITUS
     Dosage: 4MG PER DAY
     Route: 048
     Dates: start: 20051103
  2. ENALAPRIL MALEAT [Concomitant]
     Dosage: 5MG PER DAY
     Route: 048
     Dates: start: 20060202
  3. METFORMIN [Concomitant]
     Dosage: 1000MG TWICE PER DAY
     Route: 048
     Dates: start: 20050314

REACTIONS (5)
  - ANEURYSM [None]
  - ARRHYTHMIA [None]
  - CHILLS [None]
  - DEATH [None]
  - DIARRHOEA [None]
